FAERS Safety Report 9241737 (Version 5)
Quarter: 2014Q1

REPORT INFORMATION
  Report Type: Spontaneous
  Country: CA (occurrence: CA)
  Receive Date: 20130419
  Receipt Date: 20140124
  Transmission Date: 20141002
  Serious: Yes (Hospitalization)
  Sender: FDA-Public Use
  Company Number: CA-ROCHE-1215335

PATIENT
  Age: 55 Year
  Sex: Male

DRUGS (9)
  1. XOLAIR [Suspect]
     Indication: ASTHMA
     Route: 058
     Dates: start: 20090123
  2. XOLAIR [Suspect]
     Route: 058
     Dates: start: 20090327
  3. XOLAIR [Suspect]
     Route: 065
     Dates: start: 20131030
  4. XOLAIR [Suspect]
     Route: 058
     Dates: start: 20140121
  5. PREDNISONE [Concomitant]
  6. SYMBICORT [Concomitant]
  7. ATROVENT [Concomitant]
  8. UNIPHYL [Concomitant]
  9. SINGULAIR [Concomitant]

REACTIONS (7)
  - Asthma [Unknown]
  - Nasopharyngitis [Recovered/Resolved]
  - Cough [Unknown]
  - Body temperature decreased [Not Recovered/Not Resolved]
  - Malaise [Unknown]
  - Nasal congestion [Unknown]
  - Influenza like illness [Unknown]
